FAERS Safety Report 20257293 (Version 3)
Quarter: 2022Q1

REPORT INFORMATION
  Report Type: Report from Study
  Country: ES (occurrence: ES)
  Receive Date: 20211230
  Receipt Date: 20220124
  Transmission Date: 20220423
  Serious: Yes (Hospitalization, Other)
  Sender: FDA-Public Use
  Company Number: ES-SAMSUNG BIOEPIS-SB-2021-25477

PATIENT
  Age: 75 Year
  Sex: Female

DRUGS (11)
  1. METHOTREXATE [Suspect]
     Active Substance: METHOTREXATE
     Indication: Product used for unknown indication
     Dosage: UNKNOWN
     Route: 065
  2. IMRALDI [Suspect]
     Active Substance: ADALIMUMAB
     Indication: Rheumatoid arthritis
     Dosage: 40 MILLIGRAM, BIWEEKLY/23-SEP-2020
     Route: 065
     Dates: end: 20201216
  3. IMRALDI [Suspect]
     Active Substance: ADALIMUMAB
     Dosage: 26-OCT-2021
     Dates: end: 20211026
  4. IMRALDI [Suspect]
     Active Substance: ADALIMUMAB
     Dosage: 40 MILLIGRAM, BIWEEKLY/26-OCT-2021
     Route: 065
     Dates: end: 20211026
  5. HYDROCHLOROTHIAZIDE\OLMESARTAN MEDOXOMIL [Suspect]
     Active Substance: HYDROCHLOROTHIAZIDE\OLMESARTAN MEDOXOMIL
     Indication: Hypertension
     Dosage: (20/12, SC. 24 H), 25 MILLIGRAM/12.5 MILLIGRAM, STARTED 20 DAYS AGO. 1-0-0
     Route: 065
  6. PEITEL [Concomitant]
     Indication: Product used for unknown indication
     Dosage: UNKNOWN. SOLUTION
     Route: 061
  7. BILASTINE [Concomitant]
     Active Substance: BILASTINE
     Indication: Product used for unknown indication
     Dosage: 20 MILLIGRAM, QD, 1-0-0
     Route: 065
  8. MASTICAL D [Concomitant]
     Indication: Product used for unknown indication
     Dosage: 500 MILLIGRAM, QD, 1-0-0
     Route: 065
  9. ASPIRIN [Concomitant]
     Active Substance: ASPIRIN
     Indication: Product used for unknown indication
     Dosage: 100 MILLIGRAM, QD, 0-1-0
     Route: 065
  10. Parizac [Concomitant]
     Indication: Product used for unknown indication
     Dosage: 20 MILLIGRAM
     Route: 065
  11. ACETAMINOPHEN\TRAMADOL HYDROCHLORIDE [Concomitant]
     Active Substance: ACETAMINOPHEN\TRAMADOL HYDROCHLORIDE
     Indication: Product used for unknown indication
     Dosage: 75 MILLIGRAM/650 MILLIGRAM, HALF ON DEMAND
     Route: 065

REACTIONS (27)
  - Hepatotoxicity [Recovered/Resolved]
  - Acute kidney injury [Recovered/Resolved]
  - Diarrhoea [Unknown]
  - Hyperglycaemia [Unknown]
  - Cerebral atrophy [Recovered/Resolved]
  - Blood glucose abnormal [Unknown]
  - Craniocerebral injury [Recovered/Resolved]
  - Skin lesion [Recovered/Resolved]
  - Normochromic anaemia [Unknown]
  - Hypotension [Unknown]
  - Lacunar infarction [Recovered/Resolved]
  - Lymphadenopathy mediastinal [Unknown]
  - Fluid intake reduced [Unknown]
  - Cholelithiasis [Unknown]
  - Aortic valve calcification [Unknown]
  - Pulmonary calcification [Unknown]
  - Pyrexia [Recovered/Resolved]
  - Hiatus hernia [Unknown]
  - Arteriosclerosis coronary artery [Recovered/Resolved]
  - Paradoxical psoriasis [Unknown]
  - Cardiomegaly [Unknown]
  - Tricuspid valve incompetence [Recovered/Resolved]
  - Osteoporosis [Unknown]
  - Choluria [Unknown]
  - Thyroid mass [Unknown]
  - Fall [Recovered/Resolved]
  - Infection [Recovered/Resolved]

NARRATIVE: CASE EVENT DATE: 20210318
